FAERS Safety Report 13381069 (Version 1)
Quarter: 2017Q1

REPORT INFORMATION
  Report Type: Spontaneous
  Country: US (occurrence: US)
  Receive Date: 20170329
  Receipt Date: 20170329
  Transmission Date: 20170429
  Serious: No
  Sender: FDA-Public Use
  Company Number: US-PFIZER INC-2017125360

PATIENT
  Age: 58 Year
  Sex: Female

DRUGS (7)
  1. ULTRAM [Suspect]
     Active Substance: TRAMADOL HYDROCHLORIDE
     Dosage: UNK
  2. IRON [Suspect]
     Active Substance: IRON
     Dosage: UNK
  3. PRISTIQ EXTENDED-RELEASE [Suspect]
     Active Substance: DESVENLAFAXINE SUCCINATE
     Dosage: UNK
  4. CODEINE [Suspect]
     Active Substance: CODEINE
     Dosage: UNK
  5. SYNVISC [Suspect]
     Active Substance: HYALURONATE SODIUM
     Dosage: UNK
  6. SAVELLA [Suspect]
     Active Substance: MILNACIPRAN HYDROCHLORIDE
     Dosage: UNK
  7. SEROTONIN [Suspect]
     Active Substance: SEROTONIN
     Dosage: UNK

REACTIONS (1)
  - Drug hypersensitivity [Unknown]
